FAERS Safety Report 4773948-6 (Version None)
Quarter: 2005Q3

REPORT INFORMATION
  Report Type: 
  Country: None (occurrence: None)
  Receive Date: 20050919
  Receipt Date: 20050906
  Transmission Date: 20060218
  Serious: Yes (Other)
  Sender: FDA-Public Use
  Company Number: MEDI-0003668

PATIENT
  Age: 62 Year
  Sex: Male

DRUGS (1)
  1. ETHYOL [Suspect]
     Dosage: 500  MG, SUBCUTANEOUS
     Route: 058
     Dates: end: 20050826

REACTIONS (3)
  - DEPRESSION [None]
  - MORBID THOUGHTS [None]
  - ORAL INTAKE REDUCED [None]
